FAERS Safety Report 5514631-9 (Version None)
Quarter: 2007Q4

REPORT INFORMATION
  Report Type: 
  Country: None (occurrence: None)
  Receive Date: 20071113
  Receipt Date: 20071105
  Transmission Date: 20080405
  Serious: Yes (Hospitalization)
  Sender: FDA-Public Use
  Company Number: FR-ASTRAZENECA-2007CG01556

PATIENT
  Age: 29774 Day
  Sex: Male

DRUGS (8)
  1. ATACAND [Suspect]
     Route: 048
     Dates: end: 20070501
  2. LASIX [Suspect]
     Route: 048
     Dates: end: 20070501
  3. SYMBICORT [Concomitant]
     Route: 055
  4. ARANESP [Concomitant]
     Route: 058
  5. TARDYFERON [Concomitant]
     Route: 048
  6. IMOVANE [Concomitant]
     Route: 048
  7. NITRODERM [Concomitant]
     Route: 062
     Dates: end: 20070501
  8. LANTUS [Concomitant]
     Route: 058

REACTIONS (3)
  - BRADYCARDIA [None]
  - CONDUCTION DISORDER [None]
  - HYPERKALAEMIA [None]
